FAERS Safety Report 9815757 (Version 3)
Quarter: 2014Q1

REPORT INFORMATION
  Report Type: Spontaneous
  Country: US (occurrence: US)
  Receive Date: 20140114
  Receipt Date: 20140321
  Transmission Date: 20141002
  Serious: Yes (Hospitalization, Other)
  Sender: FDA-Public Use
  Company Number: US-009507513-1401USA003957

PATIENT
  Age: 27 Year
  Sex: Female

DRUGS (2)
  1. SINGULAIR [Suspect]
     Indication: HYPERSENSITIVITY
     Dosage: 10 MG, QD
     Route: 048
     Dates: start: 201101
  2. SINGULAIR [Suspect]
     Indication: ASTHMA

REACTIONS (5)
  - Vocal cord paralysis [Unknown]
  - Surgery [Unknown]
  - Laryngitis [Unknown]
  - Drug dose omission [Unknown]
  - Dysphonia [Unknown]
